FAERS Safety Report 4818976-7 (Version None)
Quarter: 2005Q4

REPORT INFORMATION
  Report Type: 
  Country: None (occurrence: None)
  Receive Date: 20051101
  Receipt Date: 20051021
  Transmission Date: 20060501
  Serious: Yes (Hospitalization)
  Sender: FDA-Public Use
  Company Number: 2005AL004341

PATIENT
  Age: 23 Year
  Sex: Female

DRUGS (7)
  1. MORPHINE SULFATE [Suspect]
     Indication: ANALGESIC EFFECT
     Dates: start: 20050831, end: 20050831
  2. REMIFENTANIL HYDROCHLORIDE ({NULL}) [Suspect]
     Indication: ANALGESIC EFFECT
     Dosage: IV
     Route: 042
     Dates: start: 20050831, end: 20050831
  3. PROPOFOL [Suspect]
     Indication: ANAESTHESIA
     Dates: start: 20050831, end: 20050831
  4. PARACETAMOL (INFANTS' APAP DROPS (ACETAMINOPHEN) (ALPHARMA) [Suspect]
     Indication: ANALGESIC EFFECT
     Dates: start: 20050831, end: 20050831
  5. CEFAZOLIN SODIUM ({NULL}) [Suspect]
     Dates: start: 20050831
  6. AMOXICILLIN TRIHYDRATE [Concomitant]
  7. CLAVULANATE POTASSIUM [Concomitant]

REACTIONS (2)
  - HEPATITIS [None]
  - OEDEMATOUS PANCREATITIS [None]
